FAERS Safety Report 4866064-6 (Version None)
Quarter: 2005Q4

REPORT INFORMATION
  Report Type: 
  Country: None (occurrence: None)
  Receive Date: 20051221
  Receipt Date: 20051213
  Transmission Date: 20060501
  Serious: Yes (Hospitalization, Other)
  Sender: FDA-Public Use
  Company Number: HQWYE029815DEC05

PATIENT
  Age: 58 Year
  Sex: Female

DRUGS (5)
  1. TAZONAM (PIPERACILLIN/TAZOBACTAM, INJECTION) [Suspect]
     Indication: PNEUMONIA
     Dosage: 4.5 G 4 TIMES PER DAY
     Route: 042
     Dates: start: 20040320, end: 20040325
  2. BIKLIN (AMIKACIN SULFATE) [Concomitant]
  3. NEXIUM [Concomitant]
  4. DIPROVAN (PROPOFOL) [Concomitant]
  5. SUFENTANIL (SUFENTANIL) [Concomitant]

REACTIONS (2)
  - STAPHYLOCOCCAL INFECTION [None]
  - SUPERINFECTION LUNG [None]
